FAERS Safety Report 20779046 (Version 1)
Quarter: 2022Q2

REPORT INFORMATION
  Report Type: Spontaneous
  Country: US (occurrence: None)
  Receive Date: 20220503
  Receipt Date: 20220503
  Transmission Date: 20220720
  Serious: Yes (Hospitalization)
  Sender: FDA-Public Use
  Company Number: None

PATIENT
  Sex: Female

DRUGS (3)
  1. ENBREL [Suspect]
     Active Substance: ETANERCEPT
  2. CALCIUM/D CAP [Concomitant]
  3. VITAMIN E CAP [Concomitant]

REACTIONS (2)
  - Therapy interrupted [None]
  - Spinal operation [None]
